FAERS Safety Report 18880767 (Version 8)
Quarter: 2022Q2

REPORT INFORMATION
  Report Type: Spontaneous
  Country: US (occurrence: US)
  Receive Date: 20210211
  Receipt Date: 20220419
  Transmission Date: 20220721
  Serious: Yes (Hospitalization, Other)
  Sender: FDA-Public Use
  Company Number: US-PFIZER INC-2021122841

PATIENT
  Age: 59 Year
  Sex: Male
  Weight: 114.28 kg

DRUGS (3)
  1. INLYTA [Suspect]
     Active Substance: AXITINIB
     Indication: Renal cell carcinoma
     Dosage: 5 MG, 2X/DAY (TAKE DOSES 12 HRS APART)
     Route: 048
     Dates: start: 20201219
  2. INLYTA [Suspect]
     Active Substance: AXITINIB
     Indication: Neoplasm
  3. KEYTRUDA [Suspect]
     Active Substance: PEMBROLIZUMAB
     Indication: Neoplasm
     Dosage: UNK

REACTIONS (18)
  - Sinusitis [Unknown]
  - Dehydration [Unknown]
  - Cholecystitis infective [Unknown]
  - Thrombosis [Unknown]
  - Weight decreased [Not Recovered/Not Resolved]
  - Gallbladder disorder [Unknown]
  - Pain [Unknown]
  - Stomatitis [Not Recovered/Not Resolved]
  - Decreased appetite [Recovered/Resolved]
  - Dysgeusia [Unknown]
  - Wound [Unknown]
  - Fatigue [Unknown]
  - Limb discomfort [Unknown]
  - Pain in extremity [Unknown]
  - Neoplasm progression [Unknown]
  - Oral disorder [Unknown]
  - Blood creatinine increased [Unknown]
  - Aphonia [Unknown]
